FAERS Safety Report 7593463-4 (Version None)
Quarter: 2011Q3

REPORT INFORMATION
  Report Type: 
  Country: None (occurrence: None)
  Receive Date: 20110706
  Receipt Date: 20110623
  Transmission Date: 20111222
  Serious: Yes (Hospitalization)
  Sender: FDA-Public Use
  Company Number: FR-JNJFOC-20110411655

PATIENT
  Age: 47 Year
  Sex: Female

DRUGS (5)
  1. CIMZIA [Suspect]
     Indication: PRODUCT USED FOR UNKNOWN INDICATION
     Route: 058
     Dates: start: 20070601, end: 20081101
  2. HUMIRA [Suspect]
     Indication: PRODUCT USED FOR UNKNOWN INDICATION
     Route: 042
     Dates: start: 20080701, end: 20100301
  3. HUMIRA [Suspect]
     Route: 042
     Dates: start: 20070201, end: 20070501
  4. REMICADE [Suspect]
     Indication: CROHN'S DISEASE
     Route: 042
     Dates: start: 20060101, end: 20061201
  5. REMICADE [Suspect]
     Route: 042
     Dates: start: 20100301, end: 20100401

REACTIONS (1)
  - CUTANEOUS LUPUS ERYTHEMATOSUS [None]
